FAERS Safety Report 19322003 (Version 1)
Quarter: 2021Q2

REPORT INFORMATION
  Report Type: Spontaneous
  Country: BR (occurrence: BR)
  Receive Date: 20210528
  Receipt Date: 20210528
  Transmission Date: 20210717
  Serious: Yes (Hospitalization)
  Sender: FDA-Public Use
  Company Number: BR-NOVOPROD-815358

PATIENT
  Age: 30 Year
  Sex: Female
  Weight: 69.4 kg

DRUGS (3)
  1. INSULATARD HM [Suspect]
     Active Substance: INSULIN HUMAN
     Dosage: UNK(24/0/20 )
     Route: 065
  2. INSULATARD HM [Suspect]
     Active Substance: INSULIN HUMAN
     Indication: DIABETES MELLITUS
     Dosage: UNK(26UI IN THE CAFE, 24UI AT LUNCH AND 12UI AT DINNER)
     Route: 065
  3. INSULATARD HM [Suspect]
     Active Substance: INSULIN HUMAN
     Dosage: UNK(19 IU)

REACTIONS (2)
  - Hypoglycaemia [Unknown]
  - Diabetic ketoacidosis [Recovered/Resolved]
